FAERS Safety Report 8708528 (Version 2)
Quarter: 2013Q1

REPORT INFORMATION
  Report Type: Spontaneous
  Country: BR (occurrence: BR)
  Receive Date: 20120806
  Receipt Date: 20130326
  Transmission Date: 20140127
  Serious: Yes (Other)
  Sender: FDA-Public Use
  Company Number: PHHY2012BR067469

PATIENT
  Age: 84 Year
  Sex: Female

DRUGS (4)
  1. DIOVAN [Suspect]
     Indication: HYPERTENSION
     Dosage: 1 DF, DAILY (80 MG)
     Route: 048
  2. DIOVAN [Suspect]
     Dosage: 2 DF, DAILY (160 MG)
     Route: 048
  3. BETASERC [Concomitant]
     Indication: LABYRINTHITIS
     Dosage: 2 DF, DAILY
     Route: 048
     Dates: start: 201301
  4. ASPIRINA PREVENT [Concomitant]
     Indication: ANTICOAGULANT THERAPY
     Dosage: 1 DF, QOD
     Route: 048

REACTIONS (3)
  - Heart rate decreased [Recovered/Resolved]
  - Blood pressure inadequately controlled [Recovered/Resolved]
  - Blood pressure increased [Recovered/Resolved]
